FAERS Safety Report 11944661 (Version 1)
Quarter: 2016Q1

REPORT INFORMATION
  Report Type: Spontaneous
  Country: SE (occurrence: SE)
  Receive Date: 20160125
  Receipt Date: 20160125
  Transmission Date: 20160526
  Serious: Yes (Death, Hospitalization)
  Sender: FDA-Public Use
  Company Number: SE-AUROBINDO-AUR-APL-2016-00676

PATIENT
  Age: 84 Year
  Sex: Male

DRUGS (1)
  1. OLANZAPINA ORION 2.5MG TABLETS [Suspect]
     Active Substance: OLANZAPINE
     Indication: PRODUCT USED FOR UNKNOWN INDICATION
     Route: 065

REACTIONS (10)
  - Dysarthria [Unknown]
  - Vision blurred [Unknown]
  - Sudden death [Fatal]
  - Fatigue [Unknown]
  - Cyanosis [Unknown]
  - Depressed level of consciousness [Unknown]
  - Unresponsive to stimuli [Unknown]
  - Impulse-control disorder [Unknown]
  - Oedema peripheral [Unknown]
  - Dyskinesia [Unknown]
